FAERS Safety Report 9178963 (Version 1)
Quarter: 2013Q1

REPORT INFORMATION
  Report Type: Report from Study
  Country: ES (occurrence: ES)
  Receive Date: 20130321
  Receipt Date: 20130321
  Transmission Date: 20140127
  Serious: Yes (Other)
  Sender: FDA-Public Use
  Company Number: ES-ROCHE-1074606

PATIENT
  Sex: 0

DRUGS (3)
  1. BEVACIZUMAB [Suspect]
     Indication: NON-SMALL CELL LUNG CANCER
     Route: 065
  2. CARBOPLATIN [Suspect]
     Indication: NON-SMALL CELL LUNG CANCER
     Route: 065
  3. CISPLATIN [Suspect]
     Indication: NON-SMALL CELL LUNG CANCER
     Route: 065

REACTIONS (5)
  - Venous thrombosis [Unknown]
  - Proteinuria [Unknown]
  - Haemoptysis [Unknown]
  - Pulmonary embolism [Unknown]
  - Mucosal inflammation [Unknown]
